FAERS Safety Report 5369349-2 (Version None)
Quarter: 2007Q2

REPORT INFORMATION
  Report Type: 
  Country: None (occurrence: None)
  Receive Date: 20070621
  Receipt Date: 20070611
  Transmission Date: 20071010
  Serious: Yes (Hospitalization)
  Sender: FDA-Public Use
  Company Number: 2007BI012491

PATIENT
  Age: 65 Year
  Sex: Female
  Weight: 52.6173 kg

DRUGS (2)
  1. AVONEX [Suspect]
     Indication: MULTIPLE SCLEROSIS
     Dosage: 30 UG QW IM
     Route: 030
     Dates: start: 20020101, end: 20030101
  2. AVONEX [Suspect]
     Indication: MULTIPLE SCLEROSIS
     Dosage: 30 UG QW IM
     Route: 030
     Dates: start: 20030101

REACTIONS (8)
  - CHRONIC OBSTRUCTIVE PULMONARY DISEASE [None]
  - HEPATIC ENZYME INCREASED [None]
  - LUNG DISORDER [None]
  - NIGHT SWEATS [None]
  - PNEUMONIA [None]
  - SCAR [None]
  - TREMOR [None]
  - WEIGHT DECREASED [None]
